FAERS Safety Report 4381135-9 (Version None)
Quarter: 2004Q2

REPORT INFORMATION
  Report Type: 
  Country: None (occurrence: None)
  Receive Date: 20040601
  Receipt Date: 20040311
  Transmission Date: 20050107
  Serious: No
  Sender: FDA-Public Use
  Company Number: FABR-10408

PATIENT
  Age: 29 Year
  Sex: Male
  Weight: 103.3 kg

DRUGS (4)
  1. FABRAZYME [Suspect]
     Indication: FABRY'S DISEASE
     Dosage: 97 MG IV
     Route: 042
     Dates: start: 20031015
  2. FABRAZYME [Suspect]
     Indication: FABRY'S DISEASE
     Dosage: 0.5 MG/KG Q2WKS IV
     Route: 042
     Dates: start: 20040206
  3. BENADRYL [Concomitant]
  4. APAP TAB [Concomitant]

REACTIONS (3)
  - CHILLS [None]
  - HYPERHIDROSIS [None]
  - PYREXIA [None]
